FAERS Safety Report 4741913-0 (Version None)
Quarter: 2005Q3

REPORT INFORMATION
  Report Type: 
  Country: None (occurrence: None)
  Receive Date: 20050801
  Receipt Date: 20050617
  Transmission Date: 20060218
  Serious: No
  Sender: FDA-Public Use
  Company Number: 2005PV000058

PATIENT
  Age: 46 Year
  Sex: Male
  Weight: 101.1521 kg

DRUGS (6)
  1. BYETTA [Suspect]
     Indication: DIABETES MELLITUS NON-INSULIN-DEPENDENT
     Dosage: 5 UG;BID;SC
     Route: 058
     Dates: start: 20050616
  2. METFORMIN [Concomitant]
  3. AVANDIA [Concomitant]
  4. ZETIA [Concomitant]
  5. COZAAR [Concomitant]
  6. LEVOTHYROXINE SODIUM [Concomitant]

REACTIONS (3)
  - DRY MOUTH [None]
  - HEADACHE [None]
  - NAUSEA [None]
